FAERS Safety Report 7621995-9 (Version None)
Quarter: 2011Q3

REPORT INFORMATION
  Report Type: 
  Country: None (occurrence: None)
  Receive Date: 20110720
  Receipt Date: 20091122
  Transmission Date: 20111222
  Serious: Yes (Other)
  Sender: FDA-Public Use
  Company Number: US-BAYER-2010-002058

PATIENT
  Age: 47 Year
  Sex: Female
  Weight: 69 kg

DRUGS (17)
  1. SOLU-CORTEF [Concomitant]
     Dosage: 100 MG, UNK
     Route: 042
     Dates: start: 19980327
  2. VANCOMYCIN [Concomitant]
     Dosage: UNK
     Route: 042
     Dates: start: 19980327
  3. PROTAMINE SULFATE [Concomitant]
  4. TRASYLOL [Suspect]
     Indication: MITRAL VALVE REPLACEMENT
     Dosage: 200 ML PER HOUR INFUSION
     Route: 042
     Dates: end: 19980327
  5. LEVOTHYROXINE SODIUM [Concomitant]
     Dosage: 0.1 MG, UNK
     Route: 048
  6. POTASSIUM [Concomitant]
     Dosage: 10 MEQ, QD
     Route: 048
  7. SERZONE [Concomitant]
     Dosage: 1 AT BEDTIME
     Route: 048
  8. BENADRYL [Concomitant]
     Dosage: 50 MG, UNK
     Route: 042
     Dates: start: 19980327
  9. ZANTAC [Concomitant]
     Dosage: 50 MG, UNK
     Route: 042
     Dates: start: 19980327
  10. TRASYLOL [Suspect]
     Indication: AORTIC VALVE REPLACEMENT
     Dosage: 200 ML LOADING DOSE
     Route: 042
     Dates: start: 19980327
  11. DIGOXIN [Concomitant]
     Dosage: .25 AND .125 EVERY OTHER DAY
  12. ESTRATEST [Concomitant]
     Route: 048
  13. CAPOTEN [Concomitant]
     Dosage: ? TABLET 4 X/DAY
     Dates: start: 19980101
  14. HEPARIN [Concomitant]
  15. LASIX [Concomitant]
     Indication: FLUID RETENTION
     Dosage: 40 MG, QD
     Route: 048
     Dates: start: 19980101, end: 20090101
  16. ACETYLSALICYLIC ACID SRT [Concomitant]
     Dosage: 81 MG DAY
  17. INSULIN [Concomitant]
     Dosage: UNK
     Dates: start: 19980327

REACTIONS (13)
  - DEPRESSION [None]
  - RENAL INJURY [None]
  - RENAL FAILURE [None]
  - EMOTIONAL DISTRESS [None]
  - FLUID RETENTION [None]
  - RENAL IMPAIRMENT [None]
  - STRESS [None]
  - FEAR [None]
  - PAIN [None]
  - INJURY [None]
  - UNEVALUABLE EVENT [None]
  - ANXIETY [None]
  - PSYCHIATRIC SYMPTOM [None]
